FAERS Safety Report 15060038 (Version 3)
Quarter: 2018Q3

REPORT INFORMATION
  Report Type: Spontaneous
  Country: CA (occurrence: CA)
  Receive Date: 20180625
  Receipt Date: 20180821
  Transmission Date: 20181010
  Serious: Yes (Other)
  Sender: FDA-Public Use
  Company Number: CA-CELLTRION INC.-2017CA017593

PATIENT

DRUGS (16)
  1. INFLECTRA [Suspect]
     Active Substance: INFLIXIMAB-DYYB
     Dosage: 520 MG
     Route: 065
     Dates: start: 20180223
  2. APO?CETIRIZINE [Concomitant]
     Active Substance: CETIRIZINE HYDROCHLORIDE
     Dosage: UNK UNK, BID
  3. INFLECTRA [Suspect]
     Active Substance: INFLIXIMAB-DYYB
     Dosage: 5 MG/KG, CYCLIC (EVERY 2, 6 WEEKS, THEN EVERY 8 WEEKS)
     Route: 042
     Dates: start: 20180810
  4. VITAMIN D [Concomitant]
     Active Substance: CHOLECALCIFEROL
     Dosage: 400 IU, 2 TABS ONCE DAILY
  5. PREDNISONE. [Concomitant]
     Active Substance: PREDNISONE
     Dosage: 10 MG
     Route: 048
     Dates: start: 201712
  6. PREDNISONE. [Concomitant]
     Active Substance: PREDNISONE
     Dosage: 20 MG, DAILY
     Route: 048
     Dates: end: 20180105
  7. PREDNISONE. [Concomitant]
     Active Substance: PREDNISONE
     Dosage: DECREASING DOSES FOR 56 DAYS
     Dates: start: 20171112, end: 20171114
  8. INFLECTRA [Suspect]
     Active Substance: INFLIXIMAB-DYYB
     Indication: COLITIS ULCERATIVE
     Dosage: 5 MG/KG, EVERY 2, 6 WEEKS, THEN EVERY 8 WEEKS
     Route: 042
     Dates: start: 20171113
  9. INFLECTRA [Suspect]
     Active Substance: INFLIXIMAB-DYYB
     Dosage: 5 MG/KG, CYCLIC (EVERY 2, 6 WEEKS, THEN EVERY 8 WEEKS)
     Route: 042
     Dates: start: 20180615
  10. CALCIUM [Concomitant]
     Active Substance: CALCIUM
     Dosage: 500 MG, BID
  11. BECLOMETHASONE                     /00212601/ [Concomitant]
     Active Substance: BECLOMETHASONE
     Dosage: UNK
     Route: 045
  12. DEXILANT [Concomitant]
     Active Substance: DEXLANSOPRAZOLE
     Dosage: 60 MG, DAILY
  13. PREDNISONE. [Concomitant]
     Active Substance: PREDNISONE
     Dosage: 15 MG
     Route: 048
     Dates: start: 2017, end: 20171211
  14. INFLECTRA [Suspect]
     Active Substance: INFLIXIMAB-DYYB
     Dosage: 5 MG/KG, CYCLIC (EVERY 2, 6 WEEKS, THEN EVERY 8 WEEKS)
     Route: 042
     Dates: start: 20180420
  15. INFLECTRA [Suspect]
     Active Substance: INFLIXIMAB-DYYB
     Dosage: 5 MG/KG, EVERY 2, 6 WEEKS, THEN EVERY 8 WEEKS
     Route: 042
     Dates: start: 20171227
  16. SOLU?CORTEF [Concomitant]
     Active Substance: HYDROCORTISONE SODIUM SUCCINATE
     Dosage: 20 MG, EVERY 8 HOURS
     Route: 042
     Dates: start: 20171112, end: 20171114

REACTIONS (6)
  - Weight increased [Unknown]
  - Vision blurred [Recovering/Resolving]
  - Condition aggravated [Recovering/Resolving]
  - Visual impairment [Recovering/Resolving]
  - Sleep disorder [Recovered/Resolved]
  - Ocular discomfort [Recovering/Resolving]

NARRATIVE: CASE EVENT DATE: 201804
